FAERS Safety Report 6902648-9 (Version None)
Quarter: 2010Q3

REPORT INFORMATION
  Report Type: 
  Country: None (occurrence: None)
  Receive Date: 20100803
  Receipt Date: 20080804
  Transmission Date: 20110219
  Serious: No
  Sender: FDA-Public Use
  Company Number: US-PFIZER INC-2008065935

PATIENT
  Sex: Female
  Weight: 88.6 kg

DRUGS (3)
  1. LYRICA [Suspect]
     Indication: FIBROMYALGIA
     Dates: start: 20050101
  2. SEROQUEL [Concomitant]
  3. NEXIUM [Concomitant]

REACTIONS (2)
  - ARTHRALGIA [None]
  - FLATULENCE [None]
